FAERS Safety Report 9582545 (Version 2)
Quarter: 2014Q1

REPORT INFORMATION
  Report Type: Spontaneous
  Country: US (occurrence: US)
  Receive Date: 20131002
  Receipt Date: 20140304
  Transmission Date: 20141002
  Serious: No
  Sender: FDA-Public Use
  Company Number: US-AMGEN-USASP2013041620

PATIENT
  Age: 49 Year
  Sex: Female
  Weight: 58.95 kg

DRUGS (5)
  1. ENBREL [Suspect]
     Indication: RHEUMATOID ARTHRITIS
     Dosage: 50 MG, QWK
     Route: 058
     Dates: start: 201304
  2. METHOTREXATE [Concomitant]
     Dosage: UNK
  3. DAYPRO [Concomitant]
     Dosage: UNK
  4. PREDNISONE [Concomitant]
     Dosage: UNK
  5. NEXIUM                             /01479303/ [Concomitant]
     Dosage: UNK

REACTIONS (4)
  - Toothache [Unknown]
  - Chronic sinusitis [Unknown]
  - Onychomycosis [Unknown]
  - Injection site pain [Recovered/Resolved]
